FAERS Safety Report 6596138-3 (Version None)
Quarter: 2010Q1

REPORT INFORMATION
  Report Type: 
  Country: None (occurrence: None)
  Receive Date: 20100223
  Receipt Date: 20100216
  Transmission Date: 20100710
  Serious: Yes (Death, Other)
  Sender: FDA-Public Use
  Company Number: US-ELI_LILLY_AND_COMPANY-US201001005373

PATIENT
  Sex: Female

DRUGS (4)
  1. ALIMTA [Suspect]
     Indication: LUNG ADENOCARCINOMA STAGE IV
     Dates: start: 20091211
  2. CARBOPLATIN [Concomitant]
     Indication: LUNG ADENOCARCINOMA STAGE IV
  3. FOLIC ACID [Concomitant]
  4. VITAMIN B-12 [Concomitant]
     Dates: start: 20091211

REACTIONS (2)
  - MALIGNANT NEOPLASM PROGRESSION [None]
  - SUDDEN DEATH [None]
